FAERS Safety Report 6724754-4 (Version None)
Quarter: 2010Q2

REPORT INFORMATION
  Report Type: 
  Country: None (occurrence: None)
  Receive Date: 20100513
  Receipt Date: 20100505
  Transmission Date: 20101027
  Serious: Yes (Death)
  Sender: FDA-Public Use
  Company Number: US-AMGEN-QUU410698

PATIENT
  Sex: Male

DRUGS (3)
  1. NPLATE [Suspect]
     Indication: IDIOPATHIC THROMBOCYTOPENIC PURPURA
     Dates: start: 20090527, end: 20090601
  2. CORTICOSTEROIDS [Concomitant]
     Dates: start: 20090218
  3. IMMU-G [Concomitant]
     Dates: start: 20090519

REACTIONS (1)
  - DEATH [None]
